FAERS Safety Report 19665923 (Version 1)
Quarter: 2021Q3

REPORT INFORMATION
  Report Type: Spontaneous
  Country: US (occurrence: US)
  Receive Date: 20210805
  Receipt Date: 20210805
  Transmission Date: 20211014
  Serious: No
  Sender: FDA-Public Use
  Company Number: US-GLAXOSMITHKLINE-USCH2021050643

PATIENT
  Age: 52 Year
  Sex: Female

DRUGS (1)
  1. NICORETTE CINNAMON SURGE [Suspect]
     Active Substance: NICOTINE
     Indication: PRODUCT USED FOR UNKNOWN INDICATION
     Dosage: UNK
     Dates: start: 20210802, end: 20210802

REACTIONS (3)
  - Expired product administered [Unknown]
  - Nicotine dependence [Unknown]
  - Product use issue [Unknown]

NARRATIVE: CASE EVENT DATE: 20210802
